FAERS Safety Report 10033471 (Version 11)
Quarter: 2015Q3

REPORT INFORMATION
  Report Type: Report from Study
  Country: US (occurrence: US)
  Receive Date: 20140325
  Receipt Date: 20150817
  Transmission Date: 20151125
  Serious: Yes (Hospitalization, Other)
  Sender: FDA-Public Use
  Company Number: US-BIOGENIDEC-2014BI025375

PATIENT
  Age: 69 Year
  Sex: Female

DRUGS (4)
  1. AVONEX [Suspect]
     Active Substance: INTERFERON BETA-1A
     Indication: MULTIPLE SCLEROSIS
     Route: 030
     Dates: start: 20040601, end: 20130214
  2. AVONEX [Suspect]
     Active Substance: INTERFERON BETA-1A
     Indication: MULTIPLE SCLEROSIS
     Route: 030
     Dates: start: 20130215
  3. AVONEX [Suspect]
     Active Substance: INTERFERON BETA-1A
     Indication: MULTIPLE SCLEROSIS
     Route: 030
     Dates: start: 20001209, end: 20031203
  4. AVONEX [Suspect]
     Active Substance: INTERFERON BETA-1A
     Indication: MULTIPLE SCLEROSIS
     Route: 030
     Dates: start: 20031204

REACTIONS (21)
  - Weight decreased [Recovered/Resolved]
  - Impaired self-care [Recovered/Resolved]
  - Feeling abnormal [Not Recovered/Not Resolved]
  - Drug dose omission [Unknown]
  - Lung neoplasm malignant [Not Recovered/Not Resolved]
  - Lymphoma [Not Recovered/Not Resolved]
  - Abasia [Recovered/Resolved]
  - Cough [Not Recovered/Not Resolved]
  - Gait disturbance [Unknown]
  - Tremor [Unknown]
  - Balance disorder [Unknown]
  - Haemoptysis [Recovered/Resolved]
  - Seizure [Recovered/Resolved]
  - Systemic lupus erythematosus [Unknown]
  - Dyspnoea [Not Recovered/Not Resolved]
  - Dizziness [Not Recovered/Not Resolved]
  - Neoplasm malignant [Not Recovered/Not Resolved]
  - Metastatic neoplasm [Not Recovered/Not Resolved]
  - Cerebrovascular accident [Recovered/Resolved]
  - Fatigue [Not Recovered/Not Resolved]
  - Headache [Unknown]

NARRATIVE: CASE EVENT DATE: 2012
